FAERS Safety Report 7183963-3 (Version None)
Quarter: 2010Q4

REPORT INFORMATION
  Report Type: 
  Country: None (occurrence: None)
  Receive Date: 20101222
  Receipt Date: 20101214
  Transmission Date: 20110411
  Serious: Yes (Hospitalization)
  Sender: FDA-Public Use
  Company Number: FR-ROCHE-748538

PATIENT
  Age: 50 Year
  Sex: Female

DRUGS (2)
  1. AVASTIN [Suspect]
     Route: 042
  2. TAXOL [Concomitant]
     Route: 042

REACTIONS (3)
  - EJECTION FRACTION DECREASED [None]
  - ILL-DEFINED DISORDER [None]
  - SEPTIC SHOCK [None]
